FAERS Safety Report 8481692-7 (Version None)
Quarter: 2012Q3

REPORT INFORMATION
  Report Type: 
  Country: None (occurrence: None)
  Receive Date: 20120702
  Receipt Date: 20120622
  Transmission Date: 20120928
  Serious: Yes (Other)
  Sender: FDA-Public Use
  Company Number: FR-ASTRAZENECA-2012SE24530

PATIENT
  Sex: Male

DRUGS (7)
  1. PRIMPERAN TAB [Concomitant]
  2. LEVOTHYROXINE SODIUM [Concomitant]
  3. IRBESARTAN AND HYDROCHLOROTHIAZIDE [Concomitant]
  4. IMODIUM [Concomitant]
  5. VANDETANIB [Suspect]
     Indication: THYROID CANCER
     Route: 048
  6. UN-ALFA [Concomitant]
  7. XANAX [Concomitant]

REACTIONS (1)
  - CORNEAL DYSTROPHY [None]
